FAERS Safety Report 10368728 (Version 3)
Quarter: 2014Q3

REPORT INFORMATION
  Report Type: Report from Study
  Country: MX (occurrence: MX)
  Receive Date: 20140807
  Receipt Date: 20140902
  Transmission Date: 20150326
  Serious: Yes (Hospitalization, Other)
  Sender: FDA-Public Use
  Company Number: PHHY2013MX119496

PATIENT
  Age: 87 Year
  Sex: Female

DRUGS (4)
  1. EXELON PATCH [Suspect]
     Active Substance: RIVASTIGMINE
     Dosage: HALF PATCH OF 9.5 MG DAILY (PATCH 10 CM2) DAILY
     Route: 062
  2. EXELON PATCH [Suspect]
     Active Substance: RIVASTIGMINE
     Indication: AMNESIA
     Dosage: 4.6 MG, (PATCH 5 CM2)
     Route: 062
  3. EXELON PATCH [Suspect]
     Active Substance: RIVASTIGMINE
     Dosage: 1 DF, DAILY (0.5 MG)
     Route: 062
     Dates: start: 2012, end: 201312
  4. EBIXA [Concomitant]
     Active Substance: MEMANTINE HYDROCHLORIDE
     Indication: AMNESIA
     Dosage: 20 MG, DAILY
     Dates: start: 2013

REACTIONS (6)
  - Pneumonia [Recovered/Resolved]
  - Hallucination, auditory [Recovering/Resolving]
  - Repetitive speech [Recovering/Resolving]
  - Wrong technique in drug usage process [Not Recovered/Not Resolved]
  - Drug ineffective [Unknown]
  - Senile dementia [Recovering/Resolving]

NARRATIVE: CASE EVENT DATE: 201403
